FAERS Safety Report 8507415-0 (Version None)
Quarter: 2012Q3

REPORT INFORMATION
  Report Type: 
  Country: None (occurrence: None)
  Receive Date: 20120712
  Receipt Date: 20120706
  Transmission Date: 20120928
  Serious: Yes (Death, Hospitalization, Other)
  Sender: FDA-Public Use
  Company Number: FR-B.I. PHARMACEUTICALS,INC./RIDGEFIELD-2012-EU-03461GD

PATIENT
  Sex: Male

DRUGS (8)
  1. LAMIVUDINE [Suspect]
     Indication: HIV INFECTION
     Dates: start: 20010101
  2. ZIDOVUDINE [Suspect]
     Indication: HIV INFECTION
     Dosage: 600 MG
     Dates: start: 20010101, end: 20090101
  3. NELFINAVIR MESYLATE [Suspect]
     Indication: HIV INFECTION
     Dates: start: 20010101
  4. NEVIRAPINE [Suspect]
     Indication: HIV INFECTION
     Dates: start: 20050101, end: 20070101
  5. BOOSTED LOPINAVIR [Suspect]
     Indication: HIV INFECTION
     Dates: start: 20070101, end: 20090101
  6. EFAVIRENZ [Suspect]
     Indication: HIV INFECTION
     Dates: end: 20050101
  7. DIDANOSINE [Suspect]
     Indication: HIV INFECTION
     Dosage: 400 MG
     Dates: end: 20070101
  8. DIDANOSINE [Suspect]
     Dosage: 250 MG
     Dates: start: 20070101, end: 20090101

REACTIONS (20)
  - PORTAL HYPERTENSION [None]
  - VARICES OESOPHAGEAL [None]
  - PORTAL VEIN THROMBOSIS [None]
  - GASTRITIS ATROPHIC [None]
  - PROTEIN-LOSING GASTROENTEROPATHY [None]
  - ASCITES [None]
  - OSTEOPOROSIS [None]
  - HYPOALBUMINAEMIA [None]
  - WEIGHT DECREASED [None]
  - LIPOATROPHY [None]
  - HYPERGLYCAEMIA [None]
  - ILEITIS [None]
  - CACHEXIA [None]
  - CHOLESTASIS [None]
  - INSULIN RESISTANCE [None]
  - TOXICITY TO VARIOUS AGENTS [None]
  - NODULAR REGENERATIVE HYPERPLASIA [None]
  - GYNAECOMASTIA [None]
  - COLLATERAL CIRCULATION [None]
  - LUMBAR VERTEBRAL FRACTURE [None]
